FAERS Safety Report 18576114 (Version 2)
Quarter: 2020Q4

REPORT INFORMATION
  Report Type: Spontaneous
  Country: US (occurrence: US)
  Receive Date: 20201203
  Receipt Date: 20201229
  Transmission Date: 20210114
  Serious: Yes (Death, Other)
  Sender: FDA-Public Use
  Company Number: US-B.I. PHARMACEUTICALS,INC./RIDGEFIELD-2020-BI-065961

PATIENT
  Age: 72 Year
  Sex: Female

DRUGS (2)
  1. SYNJARDY [Suspect]
     Active Substance: EMPAGLIFLOZIN\METFORMIN HYDROCHLORIDE
     Indication: DIABETES MELLITUS
     Dosage: 5MG/1000MG
     Dates: end: 20200714
  2. SYNJARDY [Suspect]
     Active Substance: EMPAGLIFLOZIN\METFORMIN HYDROCHLORIDE
     Dosage: 12.5MG/1000MG
     Dates: start: 20200715

REACTIONS (2)
  - Renal disorder [Unknown]
  - Death [Fatal]

NARRATIVE: CASE EVENT DATE: 20201129
